FAERS Safety Report 7956096-3 (Version None)
Quarter: 2011Q4

REPORT INFORMATION
  Report Type: 
  Country: None (occurrence: None)
  Receive Date: 20111205
  Receipt Date: 20111130
  Transmission Date: 20120403
  Serious: Yes (Death, Hospitalization, Other)
  Sender: FDA-Public Use
  Company Number: US-BAYER-2011-103815

PATIENT
  Age: 77 Year
  Sex: Female
  Weight: 63.95 kg

DRUGS (4)
  1. MDX-010 [Suspect]
     Indication: MALIGNANT MELANOMA
     Dosage: 10 MG/KG
     Route: 041
     Dates: start: 20110804
  2. SARGRAMOSTIM [Suspect]
     Indication: MALIGNANT MELANOMA
     Dosage: 250 ?G, QD
     Route: 058
     Dates: start: 20110804
  3. SARGRAMOSTIM [Suspect]
     Dosage: UNK UNK, QD
     Route: 058
     Dates: start: 20110916, end: 20110919
  4. MDX-010 [Suspect]
     Dosage: UNK
     Route: 041
     Dates: start: 20110916, end: 20110916

REACTIONS (7)
  - RASH [None]
  - LARGE INTESTINAL HAEMORRHAGE [None]
  - GASTRIC HAEMORRHAGE [None]
  - PLATELET COUNT DECREASED [None]
  - LARGE INTESTINE PERFORATION [None]
  - DIARRHOEA [None]
  - EMBOLISM [None]
